FAERS Safety Report 24793453 (Version 1)
Quarter: 2024Q4

REPORT INFORMATION
  Report Type: Spontaneous
  Country: US (occurrence: US)
  Receive Date: 20241231
  Receipt Date: 20241231
  Transmission Date: 20250114
  Serious: No
  Sender: NOVARTIS
  Company Number: US-002147023-NVSC2024US244419

PATIENT
  Sex: Female

DRUGS (2)
  1. MEKINIST [Suspect]
     Active Substance: TRAMETINIB DIMETHYL SULFOXIDE
     Indication: Ovarian cancer
     Dosage: 2 MG, QD
     Route: 048
     Dates: start: 202410
  2. ZEPBOUND [Suspect]
     Active Substance: TIRZEPATIDE
     Indication: Product used for unknown indication
     Dosage: UNK
     Route: 065

REACTIONS (9)
  - Diarrhoea [Unknown]
  - Vomiting [Unknown]
  - Rash erythematous [Unknown]
  - Hypersomnia [Unknown]
  - Eye pain [Unknown]
  - Eye discharge [Unknown]
  - Fatigue [Unknown]
  - Vision blurred [Unknown]
  - Off label use [Unknown]
